FAERS Safety Report 9361574 (Version 1)
Quarter: 2013Q2

REPORT INFORMATION
  Report Type: Report from Study
  Country: BR (occurrence: BR)
  Receive Date: 20130621
  Receipt Date: 20130621
  Transmission Date: 20140414
  Serious: Yes (Hospitalization, Other)
  Sender: FDA-Public Use
  Company Number: PHHY2013BR063333

PATIENT
  Sex: Female

DRUGS (11)
  1. FORASEQ [Suspect]
     Indication: ASTHMA
     Dosage: 2 DF DAILY
     Dates: start: 2002
  2. FORADIL [Suspect]
     Dosage: UNK UKN, UNK
  3. ATROVENT [Suspect]
     Dosage: UNK UKN, UNK
  4. BUDESONIDE [Suspect]
     Dosage: UNK UKN, UNK
  5. LOSARTAN [Suspect]
     Dosage: UNK UKN, UNK
  6. PRESSAT [Suspect]
     Dosage: UNK UKN, UNK
  7. HYDROCHLOROTHIAZIDE [Suspect]
     Dosage: UNK UKN, UNK
  8. ARTROLIVE [Suspect]
     Dosage: UNK UKN, UNK
  9. MIONEVRIX [Suspect]
     Dosage: UNK UKN, UNK
  10. DEXALGEN [Suspect]
     Dosage: UNK UKN, UNK
  11. LOXONIN [Suspect]
     Dosage: UNK UKN, UNK

REACTIONS (6)
  - Hypertension [Unknown]
  - Asthma [Unknown]
  - Thrombosis [Unknown]
  - Diabetes mellitus [Unknown]
  - Abasia [Unknown]
  - Expired drug administered [Unknown]
